FAERS Safety Report 12080047 (Version 1)
Quarter: 2016Q1

REPORT INFORMATION
  Report Type: Spontaneous
  Country: US (occurrence: None)
  Receive Date: 20160212
  Receipt Date: 20160212
  Transmission Date: 20160526
  Serious: Yes (Other)
  Sender: FDA-Public Use
  Company Number: None

PATIENT
  Age: 9 Year
  Sex: Female
  Weight: 36.74 kg

DRUGS (3)
  1. GUANFACINE ER 3MG [Suspect]
     Active Substance: GUANFACINE
     Indication: OPPOSITIONAL DEFIANT DISORDER
     Route: 048
     Dates: start: 20141208, end: 20141215
  2. GUANFACINE ER 3MG [Suspect]
     Active Substance: GUANFACINE
     Indication: ATTENTION DEFICIT/HYPERACTIVITY DISORDER
     Route: 048
     Dates: start: 20141208, end: 20141215
  3. ZYRTEC [Concomitant]
     Active Substance: CETIRIZINE HYDROCHLORIDE

REACTIONS (5)
  - Lethargy [None]
  - Product substitution issue [None]
  - Insomnia [None]
  - Psychomotor hyperactivity [None]
  - Abdominal discomfort [None]

NARRATIVE: CASE EVENT DATE: 20141215
